FAERS Safety Report 10177279 (Version 2)
Quarter: 2014Q2

REPORT INFORMATION
  Report Type: Spontaneous
  Country: CA (occurrence: CA)
  Receive Date: 20140516
  Receipt Date: 20140516
  Transmission Date: 20141212
  Serious: Yes (Hospitalization, Other)
  Sender: FDA-Public Use
  Company Number: CA-AMGEN-CANSP2013059166

PATIENT
  Age: 68 Year
  Sex: Female

DRUGS (1)
  1. PROLIA [Suspect]
     Indication: OSTEOPOROSIS POSTMENOPAUSAL
     Dosage: 60 MG, UNK
     Route: 065
     Dates: start: 20110713

REACTIONS (5)
  - Malaise [Unknown]
  - Benign pancreatic neoplasm [Unknown]
  - Cystitis [Recovering/Resolving]
  - Urinary tract infection [Unknown]
  - Weight decreased [Unknown]
